FAERS Safety Report 12632850 (Version 2)
Quarter: 2016Q3

REPORT INFORMATION
  Report Type: Spontaneous
  Country: US (occurrence: US)
  Receive Date: 20160808
  Receipt Date: 20160808
  Transmission Date: 20161109
  Serious: No
  Sender: FDA-Public Use
  Company Number: US-BEH-2015057263

PATIENT
  Age: 34 Year
  Sex: Female
  Weight: 97 kg

DRUGS (32)
  1. AUGMENTIN [Concomitant]
     Active Substance: AMOXICILLIN\CLAVULANATE POTASSIUM
  2. OMEPRAZOLE. [Concomitant]
     Active Substance: OMEPRAZOLE
  3. BENZONATATE. [Concomitant]
     Active Substance: BENZONATATE
  4. PERCOCET [Concomitant]
     Active Substance: ACETAMINOPHEN\OXYCODONE HYDROCHLORIDE
  5. HIZENTRA [Suspect]
     Active Substance: HUMAN IMMUNOGLOBULIN G
     Route: 058
  6. PROMETHAZINE [Concomitant]
     Active Substance: PROMETHAZINE\PROMETHAZINE HYDROCHLORIDE
  7. HIZENTRA [Suspect]
     Active Substance: HUMAN IMMUNOGLOBULIN G
     Indication: IMMUNODEFICIENCY COMMON VARIABLE
     Route: 058
  8. FLUTICASONE PROPIONATE. [Concomitant]
     Active Substance: FLUTICASONE PROPIONATE
  9. LEVOTHYROXINE. [Concomitant]
     Active Substance: LEVOTHYROXINE
  10. OXYCONTIN [Concomitant]
     Active Substance: OXYCODONE HYDROCHLORIDE
  11. LIDOCAINE. [Concomitant]
     Active Substance: LIDOCAINE
  12. MOBIC [Concomitant]
     Active Substance: MELOXICAM
  13. DOCUSATE SODIUM. [Concomitant]
     Active Substance: DOCUSATE SODIUM
  14. VITAMIN D2 [Concomitant]
     Active Substance: ERGOCALCIFEROL
  15. LEFLUNOMIDE. [Concomitant]
     Active Substance: LEFLUNOMIDE
  16. HYDROXYCHLOROQUINE [Concomitant]
     Active Substance: HYDROXYCHLOROQUINE
  17. ALIGN [Concomitant]
     Active Substance: BIFIDOBACTERIUM LONGUM SUBSP. INFANTIS
  18. HIZENTRA [Suspect]
     Active Substance: HUMAN IMMUNOGLOBULIN G
     Route: 058
  19. DIPHENHYDRAMINE. [Concomitant]
     Active Substance: DIPHENHYDRAMINE
  20. BACLOFEN. [Concomitant]
     Active Substance: BACLOFEN
  21. CYCLOBENZAPRINE [Concomitant]
     Active Substance: CYCLOBENZAPRINE
  22. ESTRACE [Concomitant]
     Active Substance: ESTRADIOL
  23. MIRALAX [Concomitant]
     Active Substance: POLYETHYLENE GLYCOL 3350
  24. FOLIC ACID. [Concomitant]
     Active Substance: FOLIC ACID
  25. VITAMIN C [Concomitant]
     Active Substance: ASCORBIC ACID
  26. AVELOX [Concomitant]
     Active Substance: MOXIFLOXACIN HYDROCHLORIDE
  27. SUMATRIPTAN SUCC [Concomitant]
     Active Substance: SUMATRIPTAN SUCCINATE
  28. MEDROXYPROGESTERONE [Concomitant]
     Active Substance: MEDROXYPROGESTERONE
  29. XOPENEX [Concomitant]
     Active Substance: LEVALBUTEROL HYDROCHLORIDE
  30. EPIPEN [Concomitant]
     Active Substance: EPINEPHRINE
  31. ZOFRAN [Concomitant]
     Active Substance: ONDANSETRON HYDROCHLORIDE
  32. HYDROCORTISONE. [Concomitant]
     Active Substance: HYDROCORTISONE

REACTIONS (1)
  - Upper respiratory tract infection [Unknown]

NARRATIVE: CASE EVENT DATE: 201510
